FAERS Safety Report 6243233-4 (Version None)
Quarter: 2009Q2

REPORT INFORMATION
  Report Type: 
  Country: None (occurrence: None)
  Receive Date: 20090622
  Receipt Date: 20090622
  Transmission Date: 20091009
  Serious: Yes (Other)
  Sender: FDA-Public Use
  Company Number: None

PATIENT
  Age: 53 Year
  Sex: Female
  Weight: 81.6475 kg

DRUGS (2)
  1. CHANTIX [Suspect]
     Indication: SMOKING CESSATION THERAPY
     Dosage: 0.5 MG 1 A DAY FOR 3 DAYS PO; 0.5 MG 2 A DAY FOR 4 DAYS PO
     Route: 048
     Dates: start: 20090501, end: 20090503
  2. CHANTIX [Suspect]
     Indication: SMOKING CESSATION THERAPY
     Dosage: 0.5 MG 1 A DAY FOR 3 DAYS PO; 0.5 MG 2 A DAY FOR 4 DAYS PO
     Route: 048
     Dates: start: 20090504, end: 20090506

REACTIONS (6)
  - DEPRESSION [None]
  - HEADACHE [None]
  - IRRITABILITY [None]
  - NAUSEA [None]
  - SUICIDAL IDEATION [None]
  - THINKING ABNORMAL [None]
